FAERS Safety Report 5630627-0 (Version None)
Quarter: 2008Q1

REPORT INFORMATION
  Report Type: 
  Country: None (occurrence: None)
  Receive Date: 20080219
  Receipt Date: 20080204
  Transmission Date: 20080703
  Serious: Yes (Death, Hospitalization)
  Sender: FDA-Public Use
  Company Number: CA-GILEAD-2008-0015150

PATIENT
  Sex: Female

DRUGS (9)
  1. AMBRISENTAN [Suspect]
     Dates: start: 20071213, end: 20080127
  2. SILDENAFIL CITRATE [Concomitant]
  3. FUROSEMIDE [Concomitant]
  4. NOVOSPIRONTON [Concomitant]
  5. URSO 250 [Concomitant]
  6. PANTOPRAZOLE SODIUM [Concomitant]
  7. MULTI-VITAMIN [Concomitant]
  8. VITAMIN E [Concomitant]
  9. CALCIUM W/VITAMIN D [Concomitant]

REACTIONS (2)
  - DEATH [None]
  - LOWER LIMB FRACTURE [None]
